FAERS Safety Report 25796045 (Version 1)
Quarter: 2025Q3

REPORT INFORMATION
  Report Type: Spontaneous
  Country: US (occurrence: US)
  Receive Date: 20250912
  Receipt Date: 20250912
  Transmission Date: 20251020
  Serious: Yes (Hospitalization)
  Sender: AMGEN
  Company Number: US-AMGEN-USASP2025175714

PATIENT
  Age: 4 Decade
  Sex: Male

DRUGS (9)
  1. PREDNISONE [Suspect]
     Active Substance: PREDNISONE
     Indication: Paraneoplastic dermatomyositis
     Dosage: 20 MILLIGRAM, QD
     Route: 048
     Dates: start: 2023, end: 2023
  2. PREDNISONE [Suspect]
     Active Substance: PREDNISONE
     Dosage: 10 MILLIGRAM, QD
     Route: 048
     Dates: start: 202310, end: 202311
  3. PREDNISONE [Suspect]
     Active Substance: PREDNISONE
     Dosage: 20 MILLIGRAM, QD
     Route: 048
     Dates: start: 202311, end: 202401
  4. PREDNISONE [Suspect]
     Active Substance: PREDNISONE
     Dosage: 10 MILLIGRAM
     Route: 048
     Dates: start: 202401
  5. METHOTREXATE [Concomitant]
     Active Substance: METHOTREXATE
     Indication: Paraneoplastic dermatomyositis
     Dosage: 15 MILLIGRAM, QWK
     Route: 065
     Dates: start: 202309, end: 2023
  6. METHOTREXATE [Concomitant]
     Active Substance: METHOTREXATE
     Dosage: 25 MILLIGRAM, QWK
     Route: 065
     Dates: start: 202311, end: 202404
  7. HYDROXYCHLOROQUINE [Concomitant]
     Active Substance: HYDROXYCHLOROQUINE
     Indication: Paraneoplastic dermatomyositis
     Dosage: 200 MILLIGRAM, BID
     Route: 065
     Dates: start: 202309, end: 2023
  8. SILDENAFIL [Concomitant]
     Active Substance: SILDENAFIL
     Indication: Paraneoplastic dermatomyositis
     Dosage: 300 MILLIGRAM, QD
     Route: 065
     Dates: start: 202310
  9. PENICILLIN [Concomitant]
     Active Substance: PENICILLIN
     Indication: Evidence based treatment
     Route: 065

REACTIONS (3)
  - Paraneoplastic dermatomyositis [Recovering/Resolving]
  - Alanine aminotransferase increased [Unknown]
  - Aspartate aminotransferase increased [Unknown]

NARRATIVE: CASE EVENT DATE: 20240101
